FAERS Safety Report 23797862 (Version 2)
Quarter: 2024Q2

REPORT INFORMATION
  Report Type: Spontaneous
  Country: AU (occurrence: AU)
  Receive Date: 20240430
  Receipt Date: 20240603
  Transmission Date: 20240715
  Serious: Yes (Disabling)
  Sender: FDA-Public Use
  Company Number: AU-JNJFOC-20240468863

PATIENT
  Age: 22 Year
  Sex: Female

DRUGS (2)
  1. HALDOL DECANOATE [Suspect]
     Active Substance: HALOPERIDOL DECANOATE
     Indication: Hallucination, auditory
     Dosage: 150MG/3ML
     Route: 030
  2. HALDOL DECANOATE [Suspect]
     Active Substance: HALOPERIDOL DECANOATE
     Indication: Psychotic disorder

REACTIONS (7)
  - Suicidal ideation [Not Recovered/Not Resolved]
  - Lethargy [Not Recovered/Not Resolved]
  - Weight increased [Unknown]
  - Binge eating [Not Recovered/Not Resolved]
  - Food craving [Unknown]
  - Hyperphagia [Not Recovered/Not Resolved]
  - Drug ineffective [Unknown]

NARRATIVE: CASE EVENT DATE: 20220701
